FAERS Safety Report 16474956 (Version 1)
Quarter: 2019Q2

REPORT INFORMATION
  Report Type: Spontaneous
  Country: US (occurrence: US)
  Receive Date: 20190515
  Receipt Date: 20190515
  Transmission Date: 20190711
  Serious: Yes (Hospitalization)
  Sender: FDA-Public Use
  Company Number: None

PATIENT
  Age: 49 Year
  Sex: Male
  Weight: 77.7 kg

DRUGS (3)
  1. GEMCITABINE HYDROCHLORIDE. [Suspect]
     Active Substance: GEMCITABINE HYDROCHLORIDE
     Dates: end: 20190506
  2. PACLITAXEL PROTEIN-BOUND PARTICLES (AL BUMIN-BOUND) [Suspect]
     Active Substance: PACLITAXEL
     Dates: end: 20190506
  3. CISPLATIN. [Suspect]
     Active Substance: CISPLATIN
     Dates: end: 20190506

REACTIONS (3)
  - Back pain [None]
  - Insomnia [None]
  - Abdominal pain [None]

NARRATIVE: CASE EVENT DATE: 20190510
